FAERS Safety Report 7393840-0 (Version None)
Quarter: 2011Q2

REPORT INFORMATION
  Report Type: 
  Country: None (occurrence: None)
  Receive Date: 20110405
  Receipt Date: 20101006
  Transmission Date: 20111010
  Serious: Yes (Hospitalization, Other)
  Sender: FDA-Public Use
  Company Number: US-BAYER-201016076NA

PATIENT
  Sex: Female
  Weight: 113.64 kg

DRUGS (9)
  1. IMITREX [Concomitant]
     Dosage: UNK
     Dates: start: 20030101
  2. YAZ [Suspect]
     Indication: CONTRACEPTION
     Dosage: UNK
     Route: 048
     Dates: start: 20000101, end: 20090101
  3. YAZ [Suspect]
     Indication: MENSTRUATION IRREGULAR
  4. AZITHROMYCIN [Concomitant]
     Dosage: 250 MG, UNK
  5. SINGULAIR [Concomitant]
     Indication: ASTHMA
     Dosage: 10 MG, UNK
     Dates: start: 20000101
  6. YAZ [Suspect]
     Indication: DYSMENORRHOEA
  7. ADVIL [IBUPROFEN] [Concomitant]
  8. YASMIN [Suspect]
     Indication: PRODUCT USED FOR UNKNOWN INDICATION
  9. PROAIR HFA [Concomitant]
     Dosage: 90 ?G, UNK

REACTIONS (5)
  - HYPERTENSION [None]
  - GALLBLADDER DISORDER [None]
  - DEEP VEIN THROMBOSIS [None]
  - THROMBOSIS [None]
  - INJURY [None]
